FAERS Safety Report 9454922 (Version 1)
Quarter: 2013Q3

REPORT INFORMATION
  Report Type: Spontaneous
  Country: US (occurrence: US)
  Receive Date: 20130813
  Receipt Date: 20130813
  Transmission Date: 20140515
  Serious: No
  Sender: FDA-Public Use
  Company Number: US-009507513-1307USA015574

PATIENT
  Age: 33 Year
  Sex: Female

DRUGS (1)
  1. COZAAR [Suspect]
     Dosage: UNK
     Route: 048
     Dates: start: 20130606

REACTIONS (1)
  - Rash [Unknown]
